FAERS Safety Report 6096085-X (Version None)
Quarter: 2009Q1

REPORT INFORMATION
  Report Type: 
  Country: None (occurrence: None)
  Receive Date: 20090227
  Receipt Date: 20080821
  Transmission Date: 20090719
  Serious: No
  Sender: FDA-Public Use
  Company Number: A0745079A

PATIENT
  Age: 42 Year
  Sex: Female

DRUGS (3)
  1. LAMICTAL [Suspect]
     Indication: EPILEPSY
     Dosage: 200MG TWICE PER DAY
     Route: 048
     Dates: start: 20020701
  2. PROVIGIL [Suspect]
     Dosage: 100MG PER DAY
     Route: 048
     Dates: start: 20080716
  3. CYMBALTA [Suspect]
     Indication: DEPRESSION
     Dosage: 60MG IN THE MORNING
     Dates: start: 20080101

REACTIONS (3)
  - DRUG INTERACTION [None]
  - HEADACHE [None]
  - NAUSEA [None]
